FAERS Safety Report 4786653-7 (Version None)
Quarter: 2005Q4

REPORT INFORMATION
  Report Type: 
  Country: None (occurrence: None)
  Receive Date: 20051003
  Receipt Date: 20051003
  Transmission Date: 20060501
  Serious: No
  Sender: FDA-Public Use
  Company Number: None

PATIENT
  Age: 45 Year
  Sex: Male
  Weight: 62 kg

DRUGS (2)
  1. PROMETHAZINE [Suspect]
     Indication: VOMITING
     Dosage: 12.5 MG IV
     Route: 042
     Dates: start: 20050923
  2. DILAUDID [Concomitant]

REACTIONS (3)
  - CATHETER RELATED COMPLICATION [None]
  - PAIN IN EXTREMITY [None]
  - PALLOR [None]
